FAERS Safety Report 17365828 (Version 1)
Quarter: 2020Q1

REPORT INFORMATION
  Report Type: Spontaneous
  Country: US (occurrence: US)
  Receive Date: 20200204
  Receipt Date: 20200204
  Transmission Date: 20200409
  Serious: Yes (Other)
  Sender: FDA-Public Use
  Company Number: US-MYLANLABS-2020M1005524

PATIENT
  Age: 75 Year
  Sex: Male
  Weight: 75 kg

DRUGS (5)
  1. NORMAL SALINE [Concomitant]
     Active Substance: SODIUM CHLORIDE
     Dosage: UNK
  2. HEPARIN SODIUM INJECTION USP [Suspect]
     Active Substance: HEPARIN SODIUM
     Indication: ABNORMAL CLOTTING FACTOR
     Dosage: 11000 INTERNATIONAL UNIT
     Dates: start: 201911
  3. AMIODARONE [Concomitant]
     Active Substance: AMIODARONE
     Dosage: UNK
  4. LIDOCAINE. [Concomitant]
     Active Substance: LIDOCAINE
     Dosage: 10 MILLILITER
     Route: 058
  5. HEPARIN [Concomitant]
     Active Substance: HEPARIN SODIUM
     Dosage: UNK

REACTIONS (1)
  - Drug ineffective [Not Recovered/Not Resolved]
